FAERS Safety Report 11794552 (Version 2)
Quarter: 2016Q1

REPORT INFORMATION
  Report Type: Spontaneous
  Country: BR (occurrence: BR)
  Receive Date: 20151202
  Receipt Date: 20160113
  Transmission Date: 20160525
  Serious: Yes (Death, Hospitalization)
  Sender: FDA-Public Use
  Company Number: BR-ELI_LILLY_AND_COMPANY-BR201511009300

PATIENT
  Age: 71 Year
  Sex: Male
  Weight: 67 kg

DRUGS (8)
  1. CLOXAZOLAM [Concomitant]
     Active Substance: CLOXAZOLAM
     Indication: PRODUCT USED FOR UNKNOWN INDICATION
     Dosage: UNK, UNKNOWN
     Route: 065
  2. ALIMTA [Suspect]
     Active Substance: PEMETREXED DISODIUM
     Indication: LUNG NEOPLASM MALIGNANT
     Dosage: 884 MG, CYCLICAL
     Route: 042
     Dates: start: 20150226
  3. TRAMAL [Concomitant]
     Active Substance: TRAMADOL
     Indication: PRODUCT USED FOR UNKNOWN INDICATION
     Dosage: UNK, UNKNOWN
     Route: 065
  4. ALIMTA [Suspect]
     Active Substance: PEMETREXED DISODIUM
     Indication: BRONCHIAL NEOPLASM
  5. FAULDCARBO [Concomitant]
     Active Substance: CARBOPLATIN
     Indication: LUNG NEOPLASM MALIGNANT
     Dosage: 526 MG, CYCLICAL
     Route: 042
     Dates: start: 20150226
  6. FAULDCARBO [Concomitant]
     Active Substance: CARBOPLATIN
     Indication: BRONCHIAL NEOPLASM
     Dosage: 526 MG, CYCLICAL
     Route: 042
     Dates: start: 20150226
  7. CARBAMAZEPIN [Concomitant]
     Active Substance: CARBAMAZEPINE
     Indication: PRODUCT USED FOR UNKNOWN INDICATION
     Dosage: UNK, UNKNOWN
     Route: 065
  8. GABAPENTIN. [Concomitant]
     Active Substance: GABAPENTIN
     Indication: PRODUCT USED FOR UNKNOWN INDICATION
     Dosage: UNK, UNKNOWN
     Route: 065

REACTIONS (7)
  - Death [Fatal]
  - Pain [Not Recovered/Not Resolved]
  - General physical health deterioration [Unknown]
  - Lung infection [Recovering/Resolving]
  - Febrile neutropenia [Recovered/Resolved]
  - Off label use [Unknown]
  - Abdominal distension [Unknown]

NARRATIVE: CASE EVENT DATE: 2015
